FAERS Safety Report 26090373 (Version 1)
Quarter: 2025Q4

REPORT INFORMATION
  Report Type: Report from Study
  Country: CN (occurrence: CN)
  Receive Date: 20251126
  Receipt Date: 20251126
  Transmission Date: 20260118
  Serious: Yes (Other)
  Sender: ROCHE
  Company Number: CN-ROCHE-10000319757

PATIENT
  Age: 62 Year
  Sex: Female
  Weight: 72 kg

DRUGS (33)
  1. POLATUZUMAB VEDOTIN [Suspect]
     Active Substance: POLATUZUMAB VEDOTIN
     Indication: Diffuse large B-cell lymphoma
     Route: 042
     Dates: start: 20250228, end: 20250228
  2. POLATUZUMAB VEDOTIN [Suspect]
     Active Substance: POLATUZUMAB VEDOTIN
     Route: 042
     Dates: start: 20250515, end: 20250515
  3. RITUXIMAB [Suspect]
     Active Substance: RITUXIMAB
     Indication: Diffuse large B-cell lymphoma
     Route: 042
     Dates: start: 20250301, end: 20250301
  4. RITUXIMAB [Suspect]
     Active Substance: RITUXIMAB
     Route: 042
     Dates: start: 20250515, end: 20250515
  5. CYCLOPHOSPHAMIDE [Suspect]
     Active Substance: CYCLOPHOSPHAMIDE
     Indication: Diffuse large B-cell lymphoma
     Dosage: START DATE OF MOST RECENT DOSE.
     Route: 042
     Dates: end: 20250516
  6. PREDNISONE [Suspect]
     Active Substance: PREDNISONE
     Indication: Diffuse large B-cell lymphoma
     Dosage: START DATE OF MOST RECENT DOSE OF STUDY DRUG
     Route: 048
     Dates: end: 20250521
  7. DOXORUBICIN HYDROCHLORIDE [Suspect]
     Active Substance: DOXORUBICIN HYDROCHLORIDE
     Indication: Diffuse large B-cell lymphoma
     Dosage: START DATE OF MOST RECENT DOSE OF STUDY DRUG: 17-MAY-2025
     Route: 042
     Dates: end: 20250516
  8. Sacubitril Valsartan Sodium Tablets [Concomitant]
  9. BISOPROLOL FUMARATE [Concomitant]
     Active Substance: BISOPROLOL FUMARATE
  10. ATORVASTATIN CALCIUM [Concomitant]
     Active Substance: ATORVASTATIN CALCIUM
  11. CLOPIDOGREL BISULFATE [Concomitant]
     Active Substance: CLOPIDOGREL BISULFATE
  12. ASPIRIN [Concomitant]
     Active Substance: ASPIRIN
  13. ISOSORBIDE MONONITRATE [Concomitant]
     Active Substance: ISOSORBIDE MONONITRATE
  14. Trimetazidine Hydrochloride Tablets [Concomitant]
  15. PRAMIPEXOLE DIHYDROCHLORIDE [Concomitant]
     Active Substance: PRAMIPEXOLE DIHYDROCHLORIDE
  16. Levodopa and Benserazide Hydrochloride Tablets [Concomitant]
  17. Alprazolam Tables [Concomitant]
  18. BUDESONIDE [Concomitant]
     Active Substance: BUDESONIDE
  19. Acetylcysteine Solution for Inhalation [Concomitant]
  20. SODIUM BICARBONATE [Concomitant]
     Active Substance: SODIUM BICARBONATE
     Indication: Alkalinuria
  21. LACTULOSE [Concomitant]
     Active Substance: LACTULOSE
  22. DIPHENHYDRAMINE HYDROCHLORIDE [Concomitant]
     Active Substance: DIPHENHYDRAMINE HYDROCHLORIDE
  23. METHYLPREDNISOLONE SODIUM SUCCINATE [Concomitant]
     Active Substance: METHYLPREDNISOLONE SODIUM SUCCINATE
  24. IBUPROFEN [Concomitant]
     Active Substance: IBUPROFEN
  25. DEXAMETHASONE SODIUM PHOSPHATE [Concomitant]
     Active Substance: DEXAMETHASONE SODIUM PHOSPHATE
  26. TORSEMIDE [Concomitant]
     Active Substance: TORSEMIDE
  27. FOSAPREPITANT DIMEGLUMINE [Concomitant]
     Active Substance: FOSAPREPITANT DIMEGLUMINE
  28. Ondansetron Hydrochloride Injection [Concomitant]
  29. Omeprazole Sodium for Injection [Concomitant]
  30. Enemia Glycerini [Concomitant]
  31. someprazole Magnesium Enteric coated Capsules [Concomitant]
  32. pegylated Recombinant Human Granulocyte Colony Stimulating Factor [Concomitant]
  33. Nadroparin Calcium Injection [Concomitant]
     Route: 058
     Dates: start: 20250513, end: 20250515

REACTIONS (1)
  - Hypokalaemia [Recovered/Resolved]

NARRATIVE: CASE EVENT DATE: 20250419
